FAERS Safety Report 4582954-6 (Version None)
Quarter: 2005Q1

REPORT INFORMATION
  Report Type: 
  Country: None (occurrence: None)
  Receive Date: 20050127
  Receipt Date: 20040916
  Transmission Date: 20050727
  Serious: No
  Sender: FDA-Public Use
  Company Number: USA040978551

PATIENT
  Age: 28 Year
  Sex: Male
  Weight: 68 kg

DRUGS (3)
  1. STRATTERA [Suspect]
     Indication: ATTENTION DEFICIT/HYPERACTIVITY DISORDER
     Dosage: 40 MG
     Dates: start: 20040916
  2. NEXIUM [Concomitant]
  3. PAXIL [Concomitant]

REACTIONS (3)
  - DIZZINESS [None]
  - HYPERHIDROSIS [None]
  - STOMACH DISCOMFORT [None]
